FAERS Safety Report 5227108-5 (Version None)
Quarter: 2007Q1

REPORT INFORMATION
  Report Type: 
  Country: None (occurrence: None)
  Receive Date: 20070130
  Receipt Date: 20070123
  Transmission Date: 20070707
  Serious: Yes (Hospitalization)
  Sender: FDA-Public Use
  Company Number: 235415

PATIENT
  Age: 60 Year
  Sex: Female
  Weight: 42.7 kg

DRUGS (2)
  1. AVASTIN [Suspect]
     Indication: NON-SMALL CELL LUNG CANCER
     Dosage: 735 MG, Q3W, INTRAVENOUS
     Route: 042
     Dates: start: 20061229
  2. ERLOTINIB (ERLOTINIB) TABLET, 100MG [Suspect]
     Indication: NON-SMALL CELL LUNG CANCER
     Dosage: 150 MG, QD, ORAL
     Route: 048
     Dates: start: 20070119

REACTIONS (2)
  - CACHEXIA [None]
  - WEIGHT DECREASED [None]
